FAERS Safety Report 21557874 (Version 1)
Quarter: 2022Q4

REPORT INFORMATION
  Report Type: Spontaneous
  Country: US (occurrence: None)
  Receive Date: 20221103
  Receipt Date: 20221103
  Transmission Date: 20230113
  Serious: Yes (Hospitalization)
  Sender: FDA-Public Use
  Company Number: None

PATIENT
  Sex: Female

DRUGS (1)
  1. OCTREOTIDE [Suspect]
     Active Substance: OCTREOTIDE
     Dosage: 500 MCG BID SUBCUTANEOUS? ?
     Route: 058

REACTIONS (4)
  - Peritonitis [None]
  - Clostridium difficile infection [None]
  - Haemoglobin decreased [None]
  - Atrial fibrillation [None]
